FAERS Safety Report 6697559-0 (Version None)
Quarter: 2010Q2

REPORT INFORMATION
  Report Type: 
  Country: None (occurrence: None)
  Receive Date: 20100426
  Receipt Date: 20100319
  Transmission Date: 20101027
  Serious: No
  Sender: FDA-Public Use
  Company Number: US-ABBOTT-10P-163-0634545-00

PATIENT
  Age: 66 Year
  Sex: Male
  Weight: 77.18 kg

DRUGS (2)
  1. AZMACORT [Suspect]
     Indication: PLEURISY
     Dosage: 20 GM / TAPER FROM 16 INHALATION TO 4 INHALATIONS A DAY
     Route: 055
  2. SINGULAIR [Concomitant]
     Indication: PLEURISY

REACTIONS (7)
  - ASTHMA [None]
  - DYSPHAGIA [None]
  - INSOMNIA [None]
  - LOWER RESPIRATORY TRACT INFECTION [None]
  - NASOPHARYNGITIS [None]
  - PRODUCTIVE COUGH [None]
  - SINUS CONGESTION [None]
